FAERS Safety Report 10486884 (Version 1)
Quarter: 2014Q3

REPORT INFORMATION
  Report Type: Spontaneous
  Country: US (occurrence: None)
  Receive Date: 20140930
  Receipt Date: 20140930
  Transmission Date: 20150326
  Serious: Yes (Hospitalization)
  Sender: FDA-Public Use
  Company Number: None

PATIENT
  Age: 51 Year
  Sex: Female

DRUGS (1)
  1. CISPLATIN. [Suspect]
     Active Substance: CISPLATIN

REACTIONS (5)
  - Fatigue [None]
  - Haemoglobin decreased [None]
  - Dyspnoea [None]
  - Menorrhagia [None]
  - Haematocrit decreased [None]

NARRATIVE: CASE EVENT DATE: 20140924
